FAERS Safety Report 6868201-0 (Version None)
Quarter: 2010Q3

REPORT INFORMATION
  Report Type: 
  Country: None (occurrence: None)
  Receive Date: 20100722
  Receipt Date: 20080609
  Transmission Date: 20110219
  Serious: Yes (Other)
  Sender: FDA-Public Use
  Company Number: US-PFIZER INC-2008041270

PATIENT
  Sex: Male
  Weight: 65.8 kg

DRUGS (1)
  1. CHANTIX [Suspect]
     Indication: SMOKING CESSATION THERAPY
     Dates: start: 20080417

REACTIONS (3)
  - HYPERSENSITIVITY [None]
  - MOUTH ULCERATION [None]
  - RASH MACULAR [None]
